FAERS Safety Report 6058848-6 (Version None)
Quarter: 2009Q1

REPORT INFORMATION
  Report Type: 
  Country: None (occurrence: None)
  Receive Date: 20090130
  Receipt Date: 20090123
  Transmission Date: 20090719
  Serious: Yes (Hospitalization, Other)
  Sender: FDA-Public Use
  Company Number: AU-AVENTIS-200910908GDDC

PATIENT
  Age: 45 Year
  Sex: Female

DRUGS (7)
  1. ARAVA [Suspect]
     Indication: RHEUMATOID ARTHRITIS
     Route: 048
     Dates: start: 20080319, end: 20080901
  2. SULFASALAZINE [Concomitant]
     Indication: RHEUMATOID ARTHRITIS
     Dosage: DOSE: UNK
     Dates: end: 20080901
  3. METHOTREXATE [Concomitant]
     Indication: RHEUMATOID ARTHRITIS
     Dosage: DOSE: UNK
     Dates: end: 20080901
  4. CELEBREX [Concomitant]
     Indication: RHEUMATOID ARTHRITIS
     Dosage: DOSE: UNK
     Dates: end: 20080901
  5. CODEINE SUL TAB [Concomitant]
     Indication: RHEUMATOID ARTHRITIS
     Dosage: DOSE: UNK
     Dates: end: 20080901
  6. ACETAMINOPHEN [Concomitant]
     Indication: RHEUMATOID ARTHRITIS
     Dosage: DOSE: UNK
     Dates: end: 20080901
  7. MULTI-VITAMINS [Concomitant]
     Dosage: DOSE: UNK

REACTIONS (5)
  - LOWER LIMB FRACTURE [None]
  - MALNUTRITION [None]
  - MUSCLE FATIGUE [None]
  - ORGAN FAILURE [None]
  - WEIGHT DECREASED [None]
